FAERS Safety Report 25022215 (Version 2)
Quarter: 2025Q2

REPORT INFORMATION
  Report Type: Spontaneous
  Country: US (occurrence: US)
  Receive Date: 20250228
  Receipt Date: 20250501
  Transmission Date: 20250716
  Serious: Yes (Death, Hospitalization, Other)
  Sender: NOVO NORDISK
  Company Number: US-NOVOPROD-1375418

PATIENT
  Age: 49 Year
  Sex: Female
  Weight: 58.513 kg

DRUGS (4)
  1. OZEMPIC [Suspect]
     Active Substance: SEMAGLUTIDE
     Dosage: 0.5 MG, QW
     Dates: start: 20221228, end: 20230201
  2. OZEMPIC [Suspect]
     Active Substance: SEMAGLUTIDE
     Indication: Weight control
     Dosage: 0.25 MG, QW
     Dates: start: 20221026, end: 20221228
  3. HYDROCODONE [Concomitant]
     Active Substance: HYDROCODONE
     Indication: Pain management
     Dates: start: 20230214, end: 20230713
  4. OXYCODONE [Concomitant]
     Active Substance: OXYCODONE
     Indication: Pain management
     Dates: start: 20230301, end: 20230713

REACTIONS (3)
  - Impaired gastric emptying [Fatal]
  - Pancreatitis [Fatal]
  - Off label use [Unknown]

NARRATIVE: CASE EVENT DATE: 20221026
